FAERS Safety Report 4568985-0 (Version None)
Quarter: 2005Q1

REPORT INFORMATION
  Report Type: 
  Country: None (occurrence: None)
  Receive Date: 20050126
  Receipt Date: 20050113
  Transmission Date: 20050727
  Serious: Yes (Other)
  Sender: FDA-Public Use
  Company Number: HQWYE621828APR04

PATIENT
  Age: 47 Year
  Sex: Male
  Weight: 80 kg

DRUGS (4)
  1. REFACTO [Suspect]
     Indication: FACTOR VIII DEFICIENCY
     Dosage: 2000 IU BI WEEKLY ROUTINE PROPHYLAXIS, INTRAVENOUS
     Route: 042
     Dates: start: 20030617, end: 20040501
  2. REFACTO [Suspect]
     Indication: FACTOR VIII DEFICIENCY
     Dosage: 2000 IU BI WEEKLY ROUTINE PROPHYLAXIS, INTRAVENOUS
     Route: 042
     Dates: start: 20040501, end: 20041130
  3. REFACTO [Suspect]
  4. ADVIL [Concomitant]

REACTIONS (6)
  - ACTIVATED PARTIAL THROMBOPLASTIN TIME PROLONGED [None]
  - ANTI FACTOR VIII ANTIBODY POSITIVE [None]
  - DRUG EFFECT DECREASED [None]
  - DRUG SPECIFIC ANTIBODY PRESENT [None]
  - FACTOR VIII INHIBITION [None]
  - HAEMORRHAGE [None]
